FAERS Safety Report 17025860 (Version 1)
Quarter: 2019Q4

REPORT INFORMATION
  Report Type: Spontaneous
  Country: GB (occurrence: GB)
  Receive Date: 20191113
  Receipt Date: 20191113
  Transmission Date: 20200122
  Serious: Yes (Other)
  Sender: FDA-Public Use
  Company Number: GB-PFIZER INC-2019486056

PATIENT
  Age: 40 Year
  Sex: Female
  Weight: 69.85 kg

DRUGS (7)
  1. LORATADINE. [Concomitant]
     Active Substance: LORATADINE
  2. BUSCOPAN [Concomitant]
     Active Substance: BUTYLSCOPOLAMINE BROMIDE
  3. COLECALCIFEROL [Concomitant]
     Active Substance: CHOLECALCIFEROL
  4. OMEPRAZOLE. [Concomitant]
     Active Substance: OMEPRAZOLE
  5. LEVOTHYROXINE. [Concomitant]
     Active Substance: LEVOTHYROXINE
  6. NAPROXEN. [Concomitant]
     Active Substance: NAPROXEN
  7. SERTRALINE HCL [Suspect]
     Active Substance: SERTRALINE HYDROCHLORIDE
     Indication: STRESS
     Dosage: 50 MG, UNK
     Route: 048
     Dates: start: 20171010

REACTIONS (8)
  - Myalgia [Not Recovered/Not Resolved]
  - Taste disorder [Recovering/Resolving]
  - Insomnia [Not Recovered/Not Resolved]
  - Tremor [Recovering/Resolving]
  - Weight decreased [Recovered/Resolved with Sequelae]
  - Decreased appetite [Recovering/Resolving]
  - Nausea [Recovering/Resolving]
  - Malaise [Not Recovered/Not Resolved]

NARRATIVE: CASE EVENT DATE: 20171011
